FAERS Safety Report 8271496-2 (Version None)
Quarter: 2012Q2

REPORT INFORMATION
  Report Type: 
  Country: None (occurrence: None)
  Receive Date: 20120410
  Receipt Date: 20120402
  Transmission Date: 20120825
  Serious: Yes (Hospitalization)
  Sender: FDA-Public Use
  Company Number: FR-PFIZER INC-2012077688

PATIENT
  Age: 36 Year
  Sex: Male

DRUGS (24)
  1. CYTARABINE [Suspect]
     Indication: ACUTE MYELOID LEUKAEMIA
     Dosage: UNK
     Route: 042
     Dates: start: 20120128, end: 20120204
  2. CYTARABINE [Suspect]
     Dosage: 40 MG, UNK
     Route: 039
     Dates: start: 20120209, end: 20120209
  3. VFEND [Concomitant]
     Dosage: UNK
     Dates: start: 20120217, end: 20120223
  4. ROCEPHIN [Concomitant]
     Indication: PYREXIA
     Dosage: UNK
     Dates: start: 20120127, end: 20120128
  5. PIPERACILLIN AND TAZOBACTAM [Concomitant]
     Dosage: UNK
     Dates: start: 20120209, end: 20120215
  6. PIPERACILLIN AND TAZOBACTAM [Concomitant]
     Dosage: UNK
     Dates: start: 20120217
  7. DEPO-MEDROL [Concomitant]
     Dosage: UNK
     Route: 037
     Dates: start: 20120207, end: 20120207
  8. METHOTREXATE [Concomitant]
     Dosage: UNK
     Route: 037
     Dates: start: 20120207, end: 20120207
  9. CYTARABINE [Suspect]
     Dosage: 3220 MG, UNK
     Route: 042
     Dates: start: 20120210, end: 20120212
  10. CERUBIDINE [Suspect]
     Indication: ACUTE MYELOID LEUKAEMIA
     Dosage: UNK
     Route: 042
     Dates: start: 20120130, end: 20120201
  11. ROCEPHIN [Concomitant]
     Dosage: UNK
     Dates: start: 20120201, end: 20120209
  12. METHOTREXATE [Concomitant]
     Dosage: UNK
     Route: 037
     Dates: start: 20120209, end: 20120209
  13. FASTURTEC [Concomitant]
     Dosage: UNK
     Dates: start: 20120127
  14. HYDREA [Concomitant]
     Dosage: UNK
     Dates: start: 20120127
  15. VANCOMYCIN [Concomitant]
     Dosage: UNK
     Dates: start: 20120218, end: 20120220
  16. CYTARABINE [Suspect]
     Dosage: 40 MG, UNK
     Route: 039
     Dates: start: 20120207, end: 20120207
  17. CERUBIDINE [Suspect]
     Dosage: 58 MG, CYCLIC
     Route: 042
     Dates: start: 20120210, end: 20120211
  18. ROVAMYCINE [Concomitant]
     Dosage: UNK
     Dates: start: 20120128, end: 20120201
  19. FLAGYL [Concomitant]
     Indication: BRAIN ABSCESS
     Dosage: UNK
     Dates: start: 20120203, end: 20120209
  20. DEPO-MEDROL [Concomitant]
     Dosage: UNK
     Route: 037
     Dates: start: 20120209, end: 20120209
  21. OFLOXACIN [Concomitant]
     Dosage: UNK
     Dates: start: 20120127
  22. VFEND [Concomitant]
     Indication: ASPERGILLOSIS
     Dosage: UNK
     Dates: start: 20120213, end: 20120215
  23. PIPERACILLIN AND TAZOBACTAM [Concomitant]
     Indication: ENCEPHALITIS
     Dosage: UNK
     Dates: start: 20120203, end: 20120203
  24. VANCOMYCIN [Concomitant]
     Indication: PYREXIA
     Dosage: UNK
     Dates: start: 20120212, end: 20120216

REACTIONS (5)
  - HALLUCINATION [None]
  - PYREXIA [None]
  - PALMAR-PLANTAR ERYTHRODYSAESTHESIA SYNDROME [None]
  - COMA [None]
  - DERMATITIS EXFOLIATIVE [None]
